FAERS Safety Report 24154912 (Version 1)
Quarter: 2024Q3

REPORT INFORMATION
  Report Type: Spontaneous
  Country: US (occurrence: US)
  Receive Date: 20240731
  Receipt Date: 20240731
  Transmission Date: 20241017
  Serious: No
  Sender: ABBVIE
  Company Number: US-ABBVIE-5853811

PATIENT

DRUGS (2)
  1. HUMIRA [Suspect]
     Active Substance: ADALIMUMAB
     Indication: Hidradenitis
     Route: 058
  2. COSENTYX [Concomitant]
     Active Substance: SECUKINUMAB
     Indication: Product used for unknown indication

REACTIONS (11)
  - Anxiety [Unknown]
  - Hidradenitis [Unknown]
  - Gastrointestinal disorder [Unknown]
  - Clostridium difficile infection [Unknown]
  - Irritable bowel syndrome [Unknown]
  - Panic attack [Unknown]
  - Depression [Unknown]
  - Gait disturbance [Unknown]
  - Cold sweat [Unknown]
  - Psoriasis [Unknown]
  - Alopecia [Unknown]
